FAERS Safety Report 17907071 (Version 1)
Quarter: 2020Q2

REPORT INFORMATION
  Report Type: Spontaneous
  Country: US (occurrence: US)
  Receive Date: 20200616
  Receipt Date: 20200616
  Transmission Date: 20200714
  Serious: Yes (Death)
  Sender: FDA-Public Use
  Company Number: None

PATIENT
  Age: 80 Year
  Sex: Male

DRUGS (1)
  1. REVLIMID [Suspect]
     Active Substance: LENALIDOMIDE
     Indication: MYELODYSPLASTIC SYNDROME
     Route: 048
     Dates: start: 20200507

REACTIONS (4)
  - Unresponsive to stimuli [None]
  - Cardiac arrest [None]
  - Apnoea [None]
  - Pulse absent [None]

NARRATIVE: CASE EVENT DATE: 20200520
